FAERS Safety Report 8785795 (Version 1)
Quarter: 2012Q4

REPORT INFORMATION
  Report Type: 
  Country: CA (occurrence: CA)
  Receive Date: 20120914
  Receipt Date: 20120914
  Transmission Date: 20130627
  Serious: Yes (Other)
  Sender: FDA-Public Use
  Company Number: CA-ROXANE LABORATORIES, INC.-2012-RO-01835RO

PATIENT
  Age: 60 Year
  Sex: Male

DRUGS (5)
  1. LEVETIRACETAM [Suspect]
     Indication: CONVULSION
     Dosage: 3000 mg
  2. MIDAZOLAM [Suspect]
     Indication: CONVULSION
  3. PHENYTOIN [Suspect]
     Indication: CONVULSION
  4. PROPOFOL [Suspect]
     Indication: CONVULSION
  5. CLOBAZAM [Concomitant]
     Dosage: 20 mg

REACTIONS (2)
  - Drug ineffective [Recovered/Resolved]
  - Hypotension [Recovered/Resolved]
